FAERS Safety Report 10631256 (Version 1)
Quarter: 2014Q4

REPORT INFORMATION
  Report Type: Spontaneous
  Country: US (occurrence: US)
  Receive Date: 20141205
  Receipt Date: 20141205
  Transmission Date: 20150529
  Serious: No
  Sender: FDA-Public Use
  Company Number: US-BRISTOL-MYERS SQUIBB COMPANY-21373295

PATIENT
  Age: 61 Year
  Sex: Female
  Weight: 121.54 kg

DRUGS (8)
  1. CYMBALTA [Concomitant]
     Active Substance: DULOXETINE HYDROCHLORIDE
  2. LEVOTHYROXINE [Concomitant]
     Active Substance: LEVOTHYROXINE
  3. LOSARTAN [Concomitant]
     Active Substance: LOSARTAN
  4. VITAMIN [Concomitant]
     Active Substance: VITAMINS
  5. ATIVAN [Concomitant]
     Active Substance: LORAZEPAM
  6. ABILIFY [Suspect]
     Active Substance: ARIPIPRAZOLE
     Indication: DEPRESSION
     Route: 048
     Dates: start: 20140821
  7. SIMVASTATIN. [Concomitant]
     Active Substance: SIMVASTATIN
  8. OXYCODONE [Concomitant]
     Active Substance: OXYCODONE
     Indication: ARTHRALGIA

REACTIONS (2)
  - Arthralgia [Unknown]
  - Increased appetite [Unknown]
